FAERS Safety Report 16717996 (Version 1)
Quarter: 2019Q3

REPORT INFORMATION
  Report Type: Spontaneous
  Country: AT (occurrence: AT)
  Receive Date: 20190819
  Receipt Date: 20190819
  Transmission Date: 20191005
  Serious: Yes (Other)
  Sender: FDA-Public Use
  Company Number: PHHY2019AT191962

PATIENT
  Sex: Female

DRUGS (2)
  1. CARBOPLATIN. [Suspect]
     Active Substance: CARBOPLATIN
     Indication: NON-SMALL CELL LUNG CANCER
     Dosage: UNK
     Route: 065
  2. ALIMTA [Concomitant]
     Active Substance: PEMETREXED DISODIUM
     Indication: NON-SMALL CELL LUNG CANCER
     Dosage: UNK
     Route: 065

REACTIONS (3)
  - Malignant neoplasm progression [Unknown]
  - Anaemia [Unknown]
  - Acute kidney injury [Unknown]

NARRATIVE: CASE EVENT DATE: 201705
